FAERS Safety Report 6961234-5 (Version None)
Quarter: 2010Q3

REPORT INFORMATION
  Report Type: 
  Country: None (occurrence: None)
  Receive Date: 20100901
  Receipt Date: 20100825
  Transmission Date: 20110219
  Serious: Yes (Death, Hospitalization)
  Sender: FDA-Public Use
  Company Number: A0732035A

PATIENT
  Age: 74 Year
  Sex: Male
  Weight: 86.4 kg

DRUGS (8)
  1. AVANDIA [Suspect]
     Indication: DIABETES MELLITUS
     Dosage: 4MG PER DAY
     Route: 048
     Dates: start: 20041022, end: 20070411
  2. METFORMIN [Concomitant]
  3. GLUCOTROL [Concomitant]
  4. GLIPIZIDE [Concomitant]
  5. FLOMAX [Concomitant]
  6. HYDROCHLOROTHIAZIDE [Concomitant]
  7. GEMFIBROZIL [Concomitant]
  8. FINASTERIDE [Concomitant]

REACTIONS (5)
  - ANAEMIA POSTOPERATIVE [None]
  - ATRIAL FIBRILLATION [None]
  - ATRIOVENTRICULAR BLOCK [None]
  - BUNDLE BRANCH BLOCK [None]
  - MYOCARDIAL INFARCTION [None]
